FAERS Safety Report 13642366 (Version 1)
Quarter: 2017Q2

REPORT INFORMATION
  Report Type: Spontaneous
  Country: US (occurrence: US)
  Receive Date: 20170612
  Receipt Date: 20170612
  Transmission Date: 20170830
  Serious: Yes (Other)
  Sender: FDA-Public Use
  Company Number: US-PFIZER INC-2017247459

PATIENT
  Age: 20 Year
  Sex: Male

DRUGS (5)
  1. PHENOBARBITAL. [Concomitant]
     Active Substance: PHENOBARBITAL
     Indication: BASEDOW^S DISEASE
     Dosage: 90 MG, DAILY
     Dates: start: 197410
  2. PROPRANOLOL [Concomitant]
     Active Substance: PROPRANOLOL HYDROCHLORIDE
     Indication: BASEDOW^S DISEASE
     Dosage: 40 MG, UNK
     Dates: start: 197410
  3. TAPAZOLE [Suspect]
     Active Substance: METHIMAZOLE
     Dosage: 10 MG, DAILY
     Dates: start: 197410
  4. TAPAZOLE [Suspect]
     Active Substance: METHIMAZOLE
     Indication: BASEDOW^S DISEASE
     Dosage: 90 MG, UNK
     Dates: start: 197410
  5. TAPAZOLE [Suspect]
     Active Substance: METHIMAZOLE
     Dosage: 40 MG, DAILY
     Dates: start: 197512

REACTIONS (1)
  - Nephrotic syndrome [Recovered/Resolved]

NARRATIVE: CASE EVENT DATE: 197512
